FAERS Safety Report 16329252 (Version 1)
Quarter: 2019Q2

REPORT INFORMATION
  Report Type: Spontaneous
  Country: US (occurrence: US)
  Receive Date: 20190520
  Receipt Date: 20190520
  Transmission Date: 20190711
  Serious: No
  Sender: FDA-Public Use
  Company Number: US-BION-007765

PATIENT
  Sex: Female
  Weight: 60.33 kg

DRUGS (1)
  1. MOTRIN IB [Suspect]
     Active Substance: IBUPROFEN
     Indication: PAIN
     Dosage: HALF OF A GEL CAP
     Route: 048

REACTIONS (1)
  - Wrong technique in product usage process [Not Recovered/Not Resolved]
